FAERS Safety Report 8768172 (Version 3)
Quarter: 2013Q2

REPORT INFORMATION
  Report Type: Spontaneous
  Country: US (occurrence: US)
  Receive Date: 20120831
  Receipt Date: 20130523
  Transmission Date: 20140414
  Serious: Yes (Hospitalization)
  Sender: FDA-Public Use
  Company Number: US-ELI_LILLY_AND_COMPANY-US201111004102

PATIENT
  Age: 74 Year
  Sex: Male
  Weight: 47.8 kg

DRUGS (6)
  1. FORTEO [Suspect]
     Indication: OSTEOPOROSIS
     Dosage: 20 UG, QD
     Route: 058
     Dates: start: 201106
  2. FORTEO [Suspect]
     Dosage: 20 UG, QD
     Route: 058
  3. FORTEO [Suspect]
     Dosage: 20 UG, QD
     Route: 058
  4. FORTEO [Suspect]
     Dosage: 20 UG, QD
     Route: 058
  5. FORTEO [Suspect]
     Dosage: 20 UG, QD
     Route: 058
     Dates: start: 20100805
  6. HYDROCODONE [Concomitant]
     Indication: PAIN

REACTIONS (14)
  - Occipital neuralgia [Not Recovered/Not Resolved]
  - Neoplasm skin [Unknown]
  - Nerve injury [Not Recovered/Not Resolved]
  - Memory impairment [Unknown]
  - Fall [Recovered/Resolved]
  - Malaise [Unknown]
  - Malaise [Unknown]
  - Decreased appetite [Not Recovered/Not Resolved]
  - Sinusitis [Unknown]
  - Viral infection [Unknown]
  - Neck pain [Not Recovered/Not Resolved]
  - Insomnia [Unknown]
  - Pain [Unknown]
  - Nasopharyngitis [Unknown]
